FAERS Safety Report 5673103-1 (Version None)
Quarter: 2008Q1

REPORT INFORMATION
  Report Type: 
  Country: None (occurrence: None)
  Receive Date: 20080319
  Receipt Date: 20080313
  Transmission Date: 20080703
  Serious: Yes (Other)
  Sender: FDA-Public Use
  Company Number: BR-ASTRAZENECA-2008UW05270

PATIENT
  Age: 79 Year
  Sex: Female
  Weight: 62 kg

DRUGS (7)
  1. ARIMIDEX [Suspect]
     Indication: BREAST CANCER
     Route: 048
     Dates: start: 20041001
  2. LIPITOR [Concomitant]
     Indication: HYPERCHOLESTEROLAEMIA
     Route: 048
     Dates: start: 20071101
  3. OSTENAN [Concomitant]
     Route: 048
     Dates: start: 20060101, end: 20080222
  4. BONIVA [Concomitant]
     Route: 048
     Dates: start: 20080229
  5. RIVOTRIL [Concomitant]
     Indication: ANXIETY
     Route: 048
     Dates: start: 19880101
  6. AROPAX [Concomitant]
     Indication: DEPRESSION
     Route: 048
     Dates: start: 20080301
  7. STILNOX [Concomitant]
     Indication: INSOMNIA
     Route: 048
     Dates: start: 20080301

REACTIONS (3)
  - HYPERCHOLESTEROLAEMIA [None]
  - OSTEOPENIA [None]
  - URINARY BLADDER POLYP [None]
